FAERS Safety Report 13670455 (Version 1)
Quarter: 2017Q2

REPORT INFORMATION
  Report Type: Spontaneous
  Country: BR (occurrence: BR)
  Receive Date: 20170620
  Receipt Date: 20170620
  Transmission Date: 20170830
  Serious: Yes (Other)
  Sender: FDA-Public Use
  Company Number: BR-PFIZER INC-2017262807

PATIENT
  Age: 74 Year
  Sex: Male

DRUGS (2)
  1. LIPITOR [Concomitant]
     Active Substance: ATORVASTATIN CALCIUM
  2. DOSTINEX [Suspect]
     Active Substance: CABERGOLINE
     Indication: PITUITARY TUMOUR
     Dosage: UNK
     Dates: start: 2016

REACTIONS (7)
  - Irritability [Unknown]
  - Osteoporosis [Unknown]
  - Weight decreased [Unknown]
  - Drug effect incomplete [Unknown]
  - Spinal fracture [Unknown]
  - Balance disorder [Unknown]
  - Deafness [Unknown]
